FAERS Safety Report 19089527 (Version 3)
Quarter: 2021Q4

REPORT INFORMATION
  Report Type: Report from Study
  Country: KE (occurrence: KE)
  Receive Date: 20210403
  Receipt Date: 20211231
  Transmission Date: 20220303
  Serious: Yes (Hospitalization, Other)
  Sender: FDA-Public Use
  Company Number: KE-CIPLA LTD.-2021KE02487

PATIENT

DRUGS (6)
  1. LOPINAVIR\RITONAVIR [Suspect]
     Active Substance: LOPINAVIR\RITONAVIR
     Indication: HIV infection
     Dosage: 4 DOSAGE (160/40 MG) FORM, BID
     Route: 048
     Dates: start: 20151105, end: 20160713
  2. LOPINAVIR\RITONAVIR [Suspect]
     Active Substance: LOPINAVIR\RITONAVIR
     Dosage: 5 DOSAGE (200/50 MG) FORM, BID
     Route: 048
     Dates: start: 20160714, end: 20180607
  3. ABACAVIR\LAMIVUDINE [Suspect]
     Active Substance: ABACAVIR\LAMIVUDINE
     Indication: HIV infection
     Dosage: 4 DOSAGE(120/60 MG) FORM, BID
     Route: 048
     Dates: start: 20151105, end: 20160713
  4. ABACAVIR\LAMIVUDINE [Suspect]
     Active Substance: ABACAVIR\LAMIVUDINE
     Dosage: 2.5 DOSAGE (150/75 MG) FORM, BID
     Route: 048
     Dates: start: 20160714, end: 20180607
  5. BACTRIM [Concomitant]
     Active Substance: SULFAMETHOXAZOLE\TRIMETHOPRIM
     Indication: Prophylaxis
     Dosage: 480 MILLIGRAM, QD
     Route: 048
     Dates: start: 20150220
  6. AMOXICILLIN [Concomitant]
     Active Substance: AMOXICILLIN
     Indication: Respiratory tract infection
     Dosage: 300 MILLIGRAM, BID
     Route: 065
     Dates: start: 20160127, end: 20160201

REACTIONS (8)
  - Malaria [Recovered/Resolved]
  - Respiratory tract infection [Recovered/Resolved]
  - Platelet count decreased [Recovered/Resolved]
  - Rhinitis [Recovered/Resolved]
  - Febrile convulsion [Recovered/Resolved]
  - Dermatitis atopic [Recovered/Resolved]
  - Gastroenteritis [Recovered/Resolved]
  - Anaemia [Recovered/Resolved]

NARRATIVE: CASE EVENT DATE: 20151118
